FAERS Safety Report 25182272 (Version 1)
Quarter: 2025Q2

REPORT INFORMATION
  Report Type: Spontaneous
  Country: US (occurrence: US)
  Receive Date: 20250410
  Receipt Date: 20250410
  Transmission Date: 20250717
  Serious: No
  Sender: KINIKSA PHARMACEUTICALS
  Company Number: US-Kiniksa Pharmaceuticals Ltd.-2024KPU000751

PATIENT
  Age: 41 Year
  Sex: Female

DRUGS (7)
  1. ARCALYST [Suspect]
     Active Substance: RILONACEPT
     Indication: Autoimmune pericarditis
     Route: 058
     Dates: start: 20240503
  2. ARCALYST [Suspect]
     Active Substance: RILONACEPT
     Indication: Pericarditis
     Route: 058
  3. ARCALYST [Suspect]
     Active Substance: RILONACEPT
     Dates: start: 20240510
  4. ARCALYST [Suspect]
     Active Substance: RILONACEPT
     Dates: start: 20240517
  5. ARCALYST [Suspect]
     Active Substance: RILONACEPT
  6. ANJOVY [Concomitant]
     Indication: Migraine
  7. NURTEC ODT [Concomitant]
     Active Substance: RIMEGEPANT SULFATE
     Indication: Migraine

REACTIONS (12)
  - Migraine [Not Recovered/Not Resolved]
  - Brain fog [Unknown]
  - Nausea [Not Recovered/Not Resolved]
  - Abdominal pain upper [Recovered/Resolved]
  - Hot flush [Not Recovered/Not Resolved]
  - Herpes virus infection [Not Recovered/Not Resolved]
  - Injection site scar [Unknown]
  - Fungal infection [Unknown]
  - Bacterial vaginosis [Unknown]
  - Diarrhoea [Unknown]
  - Injection site rash [Not Recovered/Not Resolved]
  - Injection site reaction [Unknown]

NARRATIVE: CASE EVENT DATE: 20240501
